FAERS Safety Report 14735752 (Version 3)
Quarter: 2018Q2

REPORT INFORMATION
  Report Type: Report from Study
  Country: US (occurrence: US)
  Receive Date: 20180409
  Receipt Date: 20180529
  Transmission Date: 20180711
  Serious: Yes (Hospitalization, Other)
  Sender: FDA-Public Use
  Company Number: US-GILEAD-2018-0331047

PATIENT
  Age: 72 Year
  Sex: Female
  Weight: 100.68 kg

DRUGS (17)
  1. VALSARTAN. [Concomitant]
     Active Substance: VALSARTAN
  2. SYMBICORT [Concomitant]
     Active Substance: BUDESONIDE\FORMOTEROL FUMARATE DIHYDRATE
  3. REVATIO [Concomitant]
     Active Substance: SILDENAFIL CITRATE
  4. FLUTICASONE. [Concomitant]
     Active Substance: FLUTICASONE
  5. OXYGEN. [Concomitant]
     Active Substance: OXYGEN
  6. METOLAZONE. [Concomitant]
     Active Substance: METOLAZONE
  7. POTASSIUM CHLORIDE. [Concomitant]
     Active Substance: POTASSIUM CHLORIDE
  8. VENTOLIN HFA [Concomitant]
     Active Substance: ALBUTEROL SULFATE
  9. PROAIR HFA [Concomitant]
     Active Substance: ALBUTEROL SULFATE
  10. AMLODIPINE [Concomitant]
     Active Substance: AMLODIPINE BESYLATE
  11. CARVEDILOL. [Concomitant]
     Active Substance: CARVEDILOL
  12. FUROSEMIDE. [Concomitant]
     Active Substance: FUROSEMIDE
  13. AMBRISENTAN [Suspect]
     Active Substance: AMBRISENTAN
     Indication: PULMONARY HYPERTENSION
     Dosage: 5 MG, UNK
     Route: 065
  14. SIMVASTATIN. [Concomitant]
     Active Substance: SIMVASTATIN
  15. BUMETANIDE. [Concomitant]
     Active Substance: BUMETANIDE
  16. MELATONIN [Concomitant]
     Active Substance: MELATONIN
  17. TRAZODONE [Concomitant]
     Active Substance: TRAZODONE HYDROCHLORIDE

REACTIONS (3)
  - Hypoxia [Unknown]
  - Fluid retention [Unknown]
  - Cardiac failure congestive [Recovered/Resolved]

NARRATIVE: CASE EVENT DATE: 20180305
